FAERS Safety Report 5447346-6 (Version None)
Quarter: 2007Q3

REPORT INFORMATION
  Report Type: 
  Country: None (occurrence: None)
  Receive Date: 20070905
  Receipt Date: 20070905
  Transmission Date: 20080115
  Serious: Yes (Hospitalization)
  Sender: FDA-Public Use
  Company Number: None

PATIENT
  Age: 50 Year
  Sex: Female
  Weight: 78.0187 kg

DRUGS (12)
  1. TARCEVA [Suspect]
     Indication: BREAST CANCER
     Dosage: 160 MG DAILY
     Dates: start: 20070821, end: 20070831
  2. LETROZOLE [Suspect]
     Dosage: 2.5 MG DAILY
     Dates: start: 20070821, end: 20070831
  3. HYDROCODONE [Concomitant]
  4. METFORMIN HCL [Concomitant]
  5. JANUVIA [Concomitant]
  6. LOVASTATIN [Concomitant]
  7. DIGITEK [Concomitant]
  8. COREG [Concomitant]
  9. LANTUS [Concomitant]
  10. EFFEXOR [Concomitant]
  11. LISINOPRIL [Concomitant]
  12. TYLENOL (CAPLET) [Concomitant]

REACTIONS (13)
  - ACIDOSIS [None]
  - ACUTE PRERENAL FAILURE [None]
  - ASTHENIA [None]
  - BLOOD GLUCOSE INCREASED [None]
  - DECREASED APPETITE [None]
  - GAIT DISTURBANCE [None]
  - HYPERKALAEMIA [None]
  - HYPERTENSION [None]
  - HYPOVOLAEMIA [None]
  - LETHARGY [None]
  - ORAL INTAKE REDUCED [None]
  - RENAL FAILURE ACUTE [None]
  - RENAL TUBULAR ACIDOSIS [None]
